FAERS Safety Report 5528643-2 (Version None)
Quarter: 2007Q4

REPORT INFORMATION
  Report Type: 
  Country: None (occurrence: None)
  Receive Date: 20071129
  Receipt Date: 20071126
  Transmission Date: 20080405
  Serious: Yes (Death, Other)
  Sender: FDA-Public Use
  Company Number: GR-BRISTOL-MYERS SQUIBB COMPANY-13994439

PATIENT
  Age: 21 Year
  Sex: Male

DRUGS (7)
  1. CYCLOPHOSPHAMIDE [Suspect]
     Indication: LYMPHOCYTIC LEUKAEMIA
  2. VINCRISTINE SULFATE [Suspect]
     Indication: LYMPHOCYTIC LEUKAEMIA
  3. CIPROFLOXACIN [Suspect]
     Indication: PSEUDOMONAS INFECTION
  4. IDARUBICIN HCL [Suspect]
     Indication: LYMPHOCYTIC LEUKAEMIA
  5. ASPARAGINASE [Suspect]
     Indication: LYMPHOCYTIC LEUKAEMIA
  6. PREDNISONE TAB [Suspect]
  7. GRANULOCYTE CSF [Suspect]

REACTIONS (6)
  - LYMPHANGITIS [None]
  - NECROTISING FASCIITIS [None]
  - NEUTROPENIA [None]
  - PYREXIA [None]
  - SEPTIC SHOCK [None]
  - STAPHYLOCOCCAL INFECTION [None]
